FAERS Safety Report 8874810 (Version 4)
Quarter: 2013Q4

REPORT INFORMATION
  Report Type: Report from Study
  Country: ES (occurrence: ES)
  Receive Date: 20121030
  Receipt Date: 20131018
  Transmission Date: 20140711
  Serious: Yes (Hospitalization)
  Sender: FDA-Public Use
  Company Number: ES-BRISTOL-MYERS SQUIBB COMPANY-17055609

PATIENT
  Age: 72 Year
  Sex: Male

DRUGS (6)
  1. CISPLATIN FOR INJ [Suspect]
     Indication: METASTATIC GASTRIC CANCER
     Route: 041
     Dates: start: 20120914
  2. 5-FLUOROURACIL [Suspect]
     Indication: METASTATIC GASTRIC CANCER
     Dosage: INJ FOR INF5680 MG:24SEP12-18SEP12,114 MG: 14SEP-14SEP12.
     Route: 041
     Dates: start: 20120914
  3. ONDANSETRON [Concomitant]
     Indication: VOMITING
     Dates: start: 20120923
  4. METOCLOPRAMIDE HCL [Concomitant]
     Indication: NAUSEA
     Dates: start: 20120923, end: 20121004
  5. FENTANYL [Concomitant]
     Indication: ABDOMINAL PAIN
     Dates: start: 20120923, end: 20121001
  6. FENTANYL [Concomitant]
     Indication: ODYNOPHAGIA
     Dates: start: 20120923, end: 20121001

REACTIONS (3)
  - Mucosal inflammation [Recovered/Resolved]
  - Diarrhoea [Recovered/Resolved]
  - Febrile neutropenia [Recovered/Resolved]
